FAERS Safety Report 24672882 (Version 1)
Quarter: 2024Q4

REPORT INFORMATION
  Report Type: Other
  Country: GB (occurrence: GB)
  Receive Date: 20241128
  Receipt Date: 20241128
  Transmission Date: 20250114
  Serious: Yes (Other)
  Sender: GLENMARK
  Company Number: None

PATIENT

DRUGS (1)
  1. MONTELUKAST SODIUM [Suspect]
     Active Substance: MONTELUKAST SODIUM
     Indication: Asthma
     Dosage: UNK
     Route: 065

REACTIONS (3)
  - Eye swelling [Recovered/Resolved with Sequelae]
  - Eosinophilic granulomatosis with polyangiitis [Unknown]
  - Medication error [Unknown]
